FAERS Safety Report 7065259-3 (Version None)
Quarter: 2010Q4

REPORT INFORMATION
  Report Type: 
  Country: None (occurrence: None)
  Receive Date: 20101027
  Receipt Date: 20101019
  Transmission Date: 20110411
  Serious: Yes (Life-Threatening)
  Sender: FDA-Public Use
  Company Number: JP-SANOFI-AVENTIS-2010SA060073

PATIENT
  Age: 80 Year
  Sex: Male

DRUGS (10)
  1. OXALIPLATIN [Suspect]
     Route: 041
     Dates: start: 20100210, end: 20100210
  2. CAMPTOSAR [Suspect]
     Route: 041
     Dates: start: 20090127, end: 20090127
  3. CALCIUM LEVOFOLINATE [Suspect]
     Route: 041
     Dates: start: 20100210
  4. CISPLATIN [Concomitant]
     Indication: SMALL INTESTINE CARCINOMA
     Route: 041
     Dates: start: 20090127, end: 20100112
  5. FLUOROURACIL [Concomitant]
     Indication: SMALL INTESTINE CARCINOMA
     Route: 041
     Dates: start: 20090302, end: 20090302
  6. FLUOROURACIL [Concomitant]
     Route: 040
     Dates: start: 20090302, end: 20090302
  7. FLUOROURACIL [Concomitant]
     Route: 041
     Dates: start: 20100112, end: 20100112
  8. FLUOROURACIL [Concomitant]
     Route: 040
     Dates: start: 20100112, end: 20100112
  9. FLUOROURACIL [Concomitant]
     Route: 040
  10. FLUOROURACIL [Concomitant]
     Route: 041

REACTIONS (7)
  - CHOLANGITIS [None]
  - DISSEMINATED INTRAVASCULAR COAGULATION [None]
  - HAEMOGLOBIN DECREASED [None]
  - NEUTROPHIL COUNT DECREASED [None]
  - PLATELET COUNT DECREASED [None]
  - SEPSIS [None]
  - WHITE BLOOD CELL COUNT DECREASED [None]
